FAERS Safety Report 11078456 (Version 1)
Quarter: 2015Q2

REPORT INFORMATION
  Report Type: Report from Study
  Country: JP (occurrence: JP)
  Receive Date: 20150430
  Receipt Date: 20150430
  Transmission Date: 20150821
  Serious: Yes (Other)
  Sender: FDA-Public Use
  Company Number: JP-MYLANLABS-2015M1014423

PATIENT

DRUGS (3)
  1. DABIGATRAN ETEXILATE [Interacting]
     Active Substance: DABIGATRAN ETEXILATE
     Indication: ANTICOAGULANT THERAPY
     Dosage: 150 MG/DAY, THEN 75 MG/DAY
     Route: 048
  2. DABIGATRAN ETEXILATE [Interacting]
     Active Substance: DABIGATRAN ETEXILATE
     Route: 048
  3. CLARITHROMYCIN TAB. 200MG ^MYLAN^ [Suspect]
     Active Substance: CLARITHROMYCIN
     Route: 065

REACTIONS (4)
  - Drug interaction [Unknown]
  - Cerebral infarction [Unknown]
  - Epistaxis [Unknown]
  - Haemorrhage subcutaneous [Unknown]
